FAERS Safety Report 9818244 (Version 3)
Quarter: 2014Q2

REPORT INFORMATION
  Report Type: Report from Study
  Country: BR (occurrence: BR)
  Receive Date: 20140115
  Receipt Date: 20140523
  Transmission Date: 20141212
  Serious: Yes (Death, Hospitalization)
  Sender: FDA-Public Use
  Company Number: BR-ROCHE-1333570

PATIENT
  Sex: Male
  Weight: 82 kg

DRUGS (1)
  1. MABTHERA [Suspect]
     Indication: RHEUMATOID ARTHRITIS
     Route: 042
     Dates: start: 20111021, end: 20131125

REACTIONS (5)
  - Pneumonia [Fatal]
  - Immunodeficiency [Not Recovered/Not Resolved]
  - Diabetes mellitus [Unknown]
  - Renal failure [Unknown]
  - Immunosuppression [Not Recovered/Not Resolved]
